FAERS Safety Report 17168952 (Version 1)
Quarter: 2019Q4

REPORT INFORMATION
  Report Type: Spontaneous
  Country: US (occurrence: US)
  Receive Date: 20191217
  Receipt Date: 20191217
  Transmission Date: 20200122
  Serious: No
  Sender: FDA-Public Use
  Company Number: None

PATIENT

DRUGS (1)
  1. SEVELAMER [Suspect]
     Active Substance: SEVELAMER

REACTIONS (2)
  - Drug intolerance [None]
  - Gastrointestinal disorder [None]
